FAERS Safety Report 23977339 (Version 1)
Quarter: 2024Q2

REPORT INFORMATION
  Report Type: Spontaneous
  Country: US (occurrence: US)
  Receive Date: 20240614
  Receipt Date: 20240614
  Transmission Date: 20240716
  Serious: Yes (Other)
  Sender: FDA-Public Use
  Company Number: US-AMGEN-USASP2024112836

PATIENT

DRUGS (2)
  1. ERENUMAB [Suspect]
     Active Substance: ERENUMAB
     Indication: Migraine
     Dosage: UNK
     Route: 065
  2. RIMEGEPANT [Suspect]
     Active Substance: RIMEGEPANT
     Indication: Migraine
     Dosage: 75 MILLIGRAM
     Route: 065

REACTIONS (23)
  - Appendicitis [Unknown]
  - Pulmonary embolism [Unknown]
  - Invasive ductal breast carcinoma [Unknown]
  - Blood creatine phosphokinase abnormal [Unknown]
  - Deep vein thrombosis [Unknown]
  - Glucose urine present [Unknown]
  - Low density lipoprotein abnormal [Unknown]
  - Colitis ischaemic [Unknown]
  - Osteoarthritis [Unknown]
  - Upper respiratory tract infection [Unknown]
  - Nasopharyngitis [Unknown]
  - Sinusitis [Unknown]
  - Urinary tract infection [Unknown]
  - Influenza [Unknown]
  - Back pain [Unknown]
  - Bronchitis [Unknown]
  - Nausea [Unknown]
  - Dizziness [Unknown]
  - Arthralgia [Unknown]
  - Anxiety [Unknown]
  - Constipation [Unknown]
  - Somnolence [Unknown]
  - Cellulitis [Unknown]
